FAERS Safety Report 6338095-0 (Version None)
Quarter: 2009Q3

REPORT INFORMATION
  Report Type: 
  Country: None (occurrence: None)
  Receive Date: 20090902
  Receipt Date: 20090826
  Transmission Date: 20100115
  Serious: Yes (Hospitalization)
  Sender: FDA-Public Use
  Company Number: PHHY2009FR36045

PATIENT
  Sex: Female

DRUGS (5)
  1. VOLTAREN [Suspect]
     Indication: NECK PAIN
     Dosage: UNK
     Dates: start: 20090717, end: 20090731
  2. KARDEGIC [Interacting]
     Indication: HYPERCHOLESTEROLAEMIA
     Dosage: 75 MG, QD
     Dates: end: 20090731
  3. COAPROVEL [Concomitant]
     Indication: HYPERTENSION
     Dosage: 300/12.5 MG ONCE A DAY
  4. FORLAX [Concomitant]
     Dosage: 4 G, QD
  5. LIPANOR [Concomitant]
     Indication: HYPERCHOLESTEROLAEMIA
     Dosage: 100 MG, QD

REACTIONS (14)
  - ABDOMINAL PAIN [None]
  - ANAEMIA [None]
  - BLOOD PRESSURE DECREASED [None]
  - DIARRHOEA [None]
  - DIVERTICULUM [None]
  - DIZZINESS POSTURAL [None]
  - DRUG INTERACTION [None]
  - FAECES DISCOLOURED [None]
  - GASTRIC ULCER HAEMORRHAGE [None]
  - GENERAL PHYSICAL HEALTH DETERIORATION [None]
  - MELAENA [None]
  - PALLOR [None]
  - RECTAL HAEMORRHAGE [None]
  - THROMBOSIS [None]
